FAERS Safety Report 15012894 (Version 2)
Quarter: 2018Q3

REPORT INFORMATION
  Report Type: Report from Study
  Country: JP (occurrence: JP)
  Receive Date: 20180614
  Receipt Date: 20180702
  Transmission Date: 20181010
  Serious: Yes (Disabling)
  Sender: FDA-Public Use
  Company Number: JP-JT-EVA201801391KERYXP-001

PATIENT
  Age: 81 Year
  Sex: Male
  Weight: 74 kg

DRUGS (16)
  1. REBAMIPIDE [Concomitant]
     Active Substance: REBAMIPIDE
     Indication: PROPHYLAXIS
     Dosage: 300 MG, QD
     Route: 048
     Dates: start: 20150116
  2. DIART [Concomitant]
     Active Substance: AZOSEMIDE
     Indication: DIABETIC NEPHROPATHY
     Dosage: 30 MG, QD
     Route: 048
     Dates: start: 20170125
  3. LUPRAC [Concomitant]
     Active Substance: TORSEMIDE
     Indication: DIABETIC NEPHROPATHY
     Dosage: 4 MG, QD
     Route: 048
     Dates: start: 20170911
  4. RIONA [Suspect]
     Active Substance: FERRIC CITRATE ANHYDROUS
     Indication: HYPERPHOSPHATAEMIA
     Dosage: 250 MG, QD
     Route: 048
     Dates: start: 20170501, end: 20180104
  5. NEXIUM [Concomitant]
     Active Substance: ESOMEPRAZOLE MAGNESIUM
     Indication: HYPERCHLORHYDRIA
     Dosage: 20 MG, QD
     Route: 048
     Dates: start: 20151210
  6. CALTAN [Concomitant]
     Active Substance: CALCIUM CARBONATE
     Indication: HYPERPHOSPHATAEMIA
     Dosage: 1000 MG, QD
     Route: 048
     Dates: start: 20170403, end: 20180104
  7. CALCIUM POLYSTYRENE SULFONATE [Concomitant]
     Active Substance: CALCIUM POLYSTYRENE SULFONATE
     Indication: HYPERPARATHYROIDISM SECONDARY
     Dosage: 5.0 G, QD
     Route: 048
     Dates: start: 20171225, end: 20180104
  8. MIRCERA [Concomitant]
     Active Substance: METHOXY POLYETHYLENE GLYCOL-EPOETIN BETA
     Indication: NEPHROGENIC ANAEMIA
     Dosage: 150 MICRO?G, 3 DOSES IN 3 MONTHS
     Route: 065
  9. TRAZENTA [Concomitant]
     Active Substance: LINAGLIPTIN
     Indication: DIABETIC NEPHROPATHY
     Dosage: 5 MG, QD
     Route: 048
     Dates: start: 20151204
  10. AMLODIPINE [Concomitant]
     Active Substance: AMLODIPINE BESYLATE
     Dosage: 5 MG, QD
     Route: 048
     Dates: start: 20150202
  11. ETIZOLAM [Concomitant]
     Active Substance: ETIZOLAM
     Indication: PROPHYLAXIS
     Dosage: 1 MG, QD
     Route: 048
     Dates: start: 20150601
  12. MIRCERA [Concomitant]
     Active Substance: METHOXY POLYETHYLENE GLYCOL-EPOETIN BETA
     Dosage: 150 MICRO?G, 3 DOSES IN 6 MONTHS
     Route: 065
  13. FEBURIC [Concomitant]
     Active Substance: FEBUXOSTAT
     Dosage: 10 MG, QD
     Route: 048
     Dates: start: 20140707
  14. ALFACALCIDOL [Concomitant]
     Active Substance: ALFACALCIDOL
     Indication: DIABETIC NEPHROPATHY
     Dosage: 0.5 MICRO?G, QD
     Route: 048
     Dates: start: 20161107
  15. SUREPOST [Concomitant]
     Active Substance: REPAGLINIDE
     Indication: DIABETIC NEPHROPATHY
     Dosage: 0.5 MG, QD
     Route: 048
     Dates: start: 20160202
  16. MIRCERA [Concomitant]
     Active Substance: METHOXY POLYETHYLENE GLYCOL-EPOETIN BETA
     Dosage: 50 MICRO?G, 3 DOSES IN 12 MONTHS
     Route: 065

REACTIONS (1)
  - Renal failure [Recovering/Resolving]

NARRATIVE: CASE EVENT DATE: 20171204
